FAERS Safety Report 22653858 (Version 1)
Quarter: 2023Q2

REPORT INFORMATION
  Report Type: Spontaneous
  Country: None (occurrence: US)
  Receive Date: 20230629
  Receipt Date: 20230629
  Transmission Date: 20230721
  Serious: No
  Sender: FDA-Public Use
  Company Number: US-P+L Developments of Newyork Corporation-2143237

PATIENT

DRUGS (2)
  1. DOCOSANOL [Suspect]
     Active Substance: DOCOSANOL
     Indication: Oral herpes
     Route: 065
  2. DOCOSANOL [Suspect]
     Active Substance: DOCOSANOL
     Route: 065

REACTIONS (3)
  - Product use in unapproved indication [Recovered/Resolved]
  - Drug effective for unapproved indication [Unknown]
  - Therapeutic response unexpected [Unknown]
